FAERS Safety Report 15057550 (Version 1)
Quarter: 2018Q2

REPORT INFORMATION
  Report Type: Spontaneous
  Country: TR (occurrence: TR)
  Receive Date: 20180625
  Receipt Date: 20180625
  Transmission Date: 20180711
  Serious: Yes (Hospitalization, Other)
  Sender: FDA-Public Use
  Company Number: TR-ACCORD-068641

PATIENT
  Age: 57 Year
  Sex: Female

DRUGS (1)
  1. METHOTREXATE. [Suspect]
     Active Substance: METHOTREXATE
     Indication: PSORIASIS
     Dosage: PRESCRIBED METHOTREXATE 3 YEARS EARLIER, PRESCRIPTION WAS RENEWED ?EVERY YEAR

REACTIONS (1)
  - Organising pneumonia [Recovering/Resolving]
